FAERS Safety Report 12927660 (Version 1)
Quarter: 2016Q4

REPORT INFORMATION
  Report Type: Report from Study
  Country: US (occurrence: US)
  Receive Date: 20161109
  Receipt Date: 20161109
  Transmission Date: 20170207
  Serious: Yes (Hospitalization)
  Sender: FDA-Public Use
  Company Number: US-009507513-1509USA009174

PATIENT
  Age: 35 Year
  Sex: Male
  Weight: 67 kg

DRUGS (1)
  1. VORINOSTAT [Suspect]
     Active Substance: VORINOSTAT
     Indication: NIEMANN-PICK DISEASE
     Route: 048

REACTIONS (1)
  - Pneumonia aspiration [Unknown]

NARRATIVE: CASE EVENT DATE: 20150915
